FAERS Safety Report 10583401 (Version 2)
Quarter: 2014Q4

REPORT INFORMATION
  Report Type: Spontaneous
  Country: GB (occurrence: None)
  Receive Date: 20141112
  Receipt Date: 20141205
  Transmission Date: 20150529
  Serious: Yes (Death, Hospitalization)
  Sender: FDA-Public Use
  Company Number: 201411IM007431

PATIENT
  Age: 63 Year
  Sex: Male

DRUGS (4)
  1. BUMETANIDE. [Concomitant]
     Active Substance: BUMETANIDE
  2. METOCLOPRAMDIE [Concomitant]
  3. LANSOPRAZOLE. [Concomitant]
     Active Substance: LANSOPRAZOLE
  4. ESBRIET [Suspect]
     Active Substance: PIRFENIDONE
     Indication: IDIOPATHIC PULMONARY FIBROSIS
     Route: 048
     Dates: start: 20140804

REACTIONS (1)
  - Death [None]

NARRATIVE: CASE EVENT DATE: 201410
